FAERS Safety Report 8062530-3 (Version None)
Quarter: 2012Q1

REPORT INFORMATION
  Report Type: 
  Country: None (occurrence: None)
  Receive Date: 20120123
  Receipt Date: 20120117
  Transmission Date: 20120608
  Serious: Yes (Hospitalization, Other)
  Sender: FDA-Public Use
  Company Number: US-SANOFI-AVENTIS-2012SA003622

PATIENT
  Sex: Male

DRUGS (8)
  1. LANTUS [Suspect]
     Dosage: DOSE:15 UNIT(S)
     Route: 058
  2. APIDRA [Suspect]
     Dosage: SLIDING SCALE WITH MEALS
     Route: 058
  3. APIDRA [Suspect]
     Indication: TYPE 2 DIABETES MELLITUS
     Dosage: SLIDING SCALE WITH MEALS
     Route: 058
  4. SOLOSTAR [Suspect]
  5. SOLOSTAR [Suspect]
     Indication: TYPE 2 DIABETES MELLITUS
  6. SOLOSTAR [Suspect]
  7. SOLOSTAR [Suspect]
  8. LANTUS [Suspect]
     Indication: TYPE 2 DIABETES MELLITUS
     Dosage: DOSE:15 UNIT(S)
     Route: 058

REACTIONS (2)
  - VISUAL IMPAIRMENT [None]
  - RENAL TRANSPLANT [None]
